FAERS Safety Report 15523881 (Version 1)
Quarter: 2018Q4

REPORT INFORMATION
  Report Type: Spontaneous
  Country: US (occurrence: US)
  Receive Date: 20181019
  Receipt Date: 20181019
  Transmission Date: 20190205
  Serious: Yes (Other)
  Sender: FDA-Public Use
  Company Number: US-FRESENIUS KABI-FK201810797

PATIENT
  Age: 55 Year
  Sex: Male

DRUGS (4)
  1. BUPIVACAINE W/EPINEPHRINE (MANUFACTURER UNKNOWN) [Suspect]
     Active Substance: BUPIVACAINE HYDROCHLORIDE\EPINEPHRINE
     Indication: NERVE BLOCK
     Dosage: 0,5 PERCENT
     Route: 053
  2. ISOFLURANE. [Suspect]
     Active Substance: ISOFLURANE
     Indication: GENERAL ANAESTHESIA
     Route: 065
  3. NITROUS OXIDE. [Suspect]
     Active Substance: NITROUS OXIDE
     Indication: GENERAL ANAESTHESIA
     Route: 065
  4. BUPIVACAINE (MANUFACTURER UNKNOWN) [Suspect]
     Active Substance: BUPIVACAINE
     Indication: NERVE BLOCK
     Dosage: 0,25 PERCENT
     Route: 053

REACTIONS (2)
  - Horner^s syndrome [Unknown]
  - Status epilepticus [Recovered/Resolved]
